FAERS Safety Report 4968226-6 (Version None)
Quarter: 2006Q2

REPORT INFORMATION
  Report Type: 
  Country: None (occurrence: None)
  Receive Date: 20060410
  Receipt Date: 20060330
  Transmission Date: 20061013
  Serious: Yes (Disabling)
  Sender: FDA-Public Use
  Company Number: GR-BRISTOL-MYERS SQUIBB COMPANY-13332523

PATIENT
  Age: 52 Year
  Sex: Male

DRUGS (1)
  1. VIDEX EC [Suspect]
     Indication: HIV INFECTION
     Dosage: DOSE INITIALLY REDUCED TO EC 250 MG DUE TO THE EVENT, THEN DISCONTINUED.
     Route: 048
     Dates: end: 20060321

REACTIONS (2)
  - FALL [None]
  - MYOPATHY [None]
